FAERS Safety Report 19303679 (Version 1)
Quarter: 2021Q2

REPORT INFORMATION
  Report Type: Spontaneous
  Country: CA (occurrence: CA)
  Receive Date: 20210525
  Receipt Date: 20210525
  Transmission Date: 20210717
  Serious: Yes (Other)
  Sender: FDA-Public Use
  Company Number: CA-TAKEDA-2021TUS032046

PATIENT
  Age: 56 Year
  Sex: Female

DRUGS (5)
  1. PREDNISONE. [Suspect]
     Active Substance: PREDNISONE
     Indication: IMMUNE THROMBOCYTOPENIA
     Route: 065
  2. HUMAN NORMAL IMMUNOGLOBULIN [Suspect]
     Active Substance: HUMAN IMMUNOGLOBULIN G
     Indication: IMMUNE THROMBOCYTOPENIA
     Dosage: UNK
     Route: 042
  3. AZATHIOPRINE. [Suspect]
     Active Substance: AZATHIOPRINE
     Indication: IMMUNE THROMBOCYTOPENIA
     Dosage: UNK
     Route: 065
  4. DANAZOL. [Suspect]
     Active Substance: DANAZOL
     Indication: IMMUNE THROMBOCYTOPENIA
     Route: 065
  5. RHO D IMMUNE GLOBULIN [Suspect]
     Active Substance: HUMAN RHO(D) IMMUNE GLOBULIN
     Indication: IMMUNE THROMBOCYTOPENIA
     Route: 065

REACTIONS (1)
  - Therapeutic product effect incomplete [Unknown]
